FAERS Safety Report 9434742 (Version 1)
Quarter: 2013Q3

REPORT INFORMATION
  Report Type: Report from Study
  Country: JP (occurrence: JP)
  Receive Date: 20130801
  Receipt Date: 20130801
  Transmission Date: 20140515
  Serious: Yes (Death)
  Sender: FDA-Public Use
  Company Number: JP-ROCHE-1254691

PATIENT
  Age: 67 Year
  Sex: Male

DRUGS (3)
  1. XELODA [Suspect]
     Indication: COLON CANCER
     Dosage: DOSAGE IS UNCERTAIN.
     Route: 048
  2. AVASTIN [Suspect]
     Indication: COLON CANCER
     Route: 041
     Dates: start: 20130613, end: 20130704
  3. ELPLAT [Concomitant]
     Indication: COLON CANCER
     Dosage: DOSAGE IS UNCERTAIN.
     Route: 041

REACTIONS (3)
  - Death [Fatal]
  - Hepatic haemorrhage [Fatal]
  - Pulmonary infarction [Fatal]
